FAERS Safety Report 8125700-1 (Version None)
Quarter: 2012Q1

REPORT INFORMATION
  Report Type: 
  Country: None (occurrence: None)
  Receive Date: 20120206
  Receipt Date: 20120121
  Transmission Date: 20120608
  Serious: Yes (Other)
  Sender: FDA-Public Use
  Company Number: 7108217

PATIENT
  Age: 27 Year
  Sex: Male

DRUGS (3)
  1. DELTACORTIL (PREDNISOLONE) (PREDNISOLONE) (PREDNISOLONE) [Suspect]
     Indication: PRODUCT USED FOR UNKNOWN INDICATION
     Dosage: (5 MG, 1X 1) ORAL
     Route: 048
     Dates: start: 20111217, end: 20120106
  2. SAIZEN [Suspect]
     Indication: PRODUCT USED FOR UNKNOWN INDICATION
     Dosage: 0.4286 MG (0.6 MG, 5 IN 1 WK) SUBCUTANEOUS
     Route: 058
     Dates: start: 20111217, end: 20120117
  3. LEVOTHYROXINE SODIUM [Suspect]
     Indication: PRODUCT USED FOR UNKNOWN INDICATION
     Dosage: (50 MCG, 1X 1) ORAL
     Route: 048
     Dates: start: 20111217, end: 20120106

REACTIONS (2)
  - ANGINA PECTORIS [None]
  - VISION BLURRED [None]
